FAERS Safety Report 19129417 (Version 1)
Quarter: 2021Q2

REPORT INFORMATION
  Report Type: Report from Study
  Country: US (occurrence: US)
  Receive Date: 20210413
  Receipt Date: 20210413
  Transmission Date: 20210717
  Serious: Yes (Hospitalization)
  Sender: FDA-Public Use
  Company Number: US-JNJFOC-20210318080

PATIENT
  Age: 86 Year
  Sex: Female
  Weight: 71.8 kg

DRUGS (1)
  1. MACITENTAN [Suspect]
     Active Substance: MACITENTAN
     Indication: PULMONARY ARTERIAL HYPERTENSION
     Route: 048

REACTIONS (5)
  - Salivary gland calculus [Unknown]
  - Cardiac failure congestive [Unknown]
  - Fall [Unknown]
  - Pneumonia [Unknown]
  - Sialoadenitis [Unknown]

NARRATIVE: CASE EVENT DATE: 20210305
